FAERS Safety Report 8792813 (Version 2)
Quarter: 2013Q4

REPORT INFORMATION
  Report Type: Spontaneous
  Country: US (occurrence: US)
  Receive Date: 20120918
  Receipt Date: 20131031
  Transmission Date: 20140711
  Serious: Yes (Hospitalization)
  Sender: FDA-Public Use
  Company Number: US-009507513-1209USA005960

PATIENT
  Sex: Male

DRUGS (1)
  1. SAPHRIS [Suspect]
     Dosage: 10 MG, BID
     Route: 048

REACTIONS (9)
  - Rash erythematous [Unknown]
  - Pruritus [Unknown]
  - Scratch [Unknown]
  - Scab [Unknown]
  - Erythema [Unknown]
  - Conjunctivitis [Unknown]
  - Oral disorder [Unknown]
  - Lip disorder [Unknown]
  - Tongue disorder [Unknown]
